FAERS Safety Report 11647850 (Version 1)
Quarter: 2015Q4

REPORT INFORMATION
  Report Type: Spontaneous
  Country: US (occurrence: None)
  Receive Date: 20151020
  Receipt Date: 20151020
  Transmission Date: 20160304
  Serious: Yes (Hospitalization)
  Sender: FDA-Public Use
  Company Number: None

PATIENT
  Sex: Female

DRUGS (3)
  1. CREST 3D WHITE WHITESTRIPS, 2 HOUR EXPRESS DENTAL WHITENTING KITS (HYDROGEN PEROXIDE 10%) STRIP, 1 STRIP [Suspect]
     Active Substance: HYDROGEN PEROXIDE
     Dosage: INTRAORAL
  2. CREST 3D WHITE WHITESTRIPS DENTAL WHITENING KIT, (HYDROGEN PEROXIDE 5.3-14%) [Suspect]
     Active Substance: HYDROGEN PEROXIDE
     Dosage: INTRAOAL
  3. CREST 3D WHITE LUXE WHITESTRIPS, GLAMOROUS WHITE (HYDROGEN PEROXIDE 95%) STRIP, 1STRIP [Suspect]
     Active Substance: HYDROGEN PEROXIDE
     Dosage: INTRAORAL

REACTIONS (6)
  - Bronchial oedema [None]
  - Sinus congestion [None]
  - Hypersensitivity [None]
  - Wheezing [None]
  - Respiration abnormal [None]
  - Bronchial obstruction [None]
